FAERS Safety Report 5193206-8 (Version None)
Quarter: 2006Q4

REPORT INFORMATION
  Report Type: 
  Country: None (occurrence: None)
  Receive Date: 20061228
  Receipt Date: 20060705
  Transmission Date: 20070319
  Serious: No
  Sender: FDA-Public Use
  Company Number: US-GLAXOSMITHKLINE-A0611146A

PATIENT
  Age: 65 Year
  Sex: Male

DRUGS (3)
  1. AVODART [Suspect]
     Indication: BENIGN PROSTATIC HYPERPLASIA
     Dosage: .5MG PER DAY
     Route: 048
     Dates: start: 20060701
  2. NEXIUM [Concomitant]
  3. UROXATRAL [Concomitant]

REACTIONS (2)
  - CONSTIPATION [None]
  - HEADACHE [None]
